FAERS Safety Report 25303869 (Version 1)
Quarter: 2025Q2

REPORT INFORMATION
  Report Type: Spontaneous
  Country: CN (occurrence: CN)
  Receive Date: 20250513
  Receipt Date: 20250513
  Transmission Date: 20250716
  Serious: Yes (Hospitalization)
  Sender: ACCORD
  Company Number: None

PATIENT
  Age: 68 Year
  Sex: Female
  Weight: 50 kg

DRUGS (3)
  1. TRASTUZUMAB [Suspect]
     Active Substance: TRASTUZUMAB
     Indication: Invasive breast carcinoma
     Dosage: 516 MILLIGRAM, QD,  IV DRIP, STRENGTH: 150 MG
     Dates: start: 20250409, end: 20250409
  2. CYCLOPHOSPHAMIDE [Suspect]
     Active Substance: CYCLOPHOSPHAMIDE
     Indication: Invasive breast carcinoma
     Dosage: 0.96 GRAM, QD, IV DIP
     Dates: start: 20250409, end: 20250409
  3. DOCETAXEL [Suspect]
     Active Substance: DOCETAXEL
     Indication: Invasive breast carcinoma
     Dosage: 120 MILLIGRAM, QD, IV DRIP
     Dates: start: 20250409, end: 20250409

REACTIONS (1)
  - Myelosuppression [Unknown]

NARRATIVE: CASE EVENT DATE: 20250416
